FAERS Safety Report 18623858 (Version 1)
Quarter: 2020Q4

REPORT INFORMATION
  Report Type: Report from Study
  Country: CO (occurrence: CO)
  Receive Date: 20201216
  Receipt Date: 20201216
  Transmission Date: 20210114
  Serious: Yes (Life-Threatening)
  Sender: FDA-Public Use
  Company Number: CO-TAKEDA-CO202002304

PATIENT
  Age: 30 Year
  Sex: Female
  Weight: 65 kg

DRUGS (20)
  1. ICATIBANT [Suspect]
     Active Substance: ICATIBANT ACETATE
     Dosage: 30MG/3ML, AS REQ^D
     Route: 058
     Dates: start: 20200515, end: 20200515
  2. ICATIBANT [Suspect]
     Active Substance: ICATIBANT ACETATE
     Dosage: ICATIBANT PREFILLED SYRINGE OF 30 MG/3 ML
     Route: 058
     Dates: start: 20180202
  3. ICATIBANT [Suspect]
     Active Substance: ICATIBANT ACETATE
     Indication: HEREDITARY ANGIOEDEMA
     Dosage: 30MG/3ML, AS REQ^D
     Route: 058
     Dates: start: 20180102
  4. ICATIBANT [Suspect]
     Active Substance: ICATIBANT ACETATE
     Indication: HEREDITARY ANGIOEDEMA
     Dosage: 30MG/3ML, AS REQ^D
     Route: 058
     Dates: start: 20180102
  5. ICATIBANT [Suspect]
     Active Substance: ICATIBANT ACETATE
     Dosage: 30MG/3ML, AS REQ^D
     Route: 058
     Dates: start: 20200130
  6. ICATIBANT [Suspect]
     Active Substance: ICATIBANT ACETATE
     Dosage: 30MG/3ML, AS REQ^D
     Route: 058
     Dates: start: 20200222
  7. ICATIBANT [Suspect]
     Active Substance: ICATIBANT ACETATE
     Dosage: 30 MG/3 ML, ONE PRE-FILLED SYRINGE
     Route: 058
     Dates: start: 20201006, end: 20201007
  8. ICATIBANT [Suspect]
     Active Substance: ICATIBANT ACETATE
     Dosage: 30MG/3ML, AS REQ^D
     Route: 058
     Dates: start: 20200130
  9. ICATIBANT [Suspect]
     Active Substance: ICATIBANT ACETATE
     Dosage: 30MG/3ML, AS REQ^D
     Route: 058
     Dates: start: 20200207, end: 20200207
  10. ICATIBANT [Suspect]
     Active Substance: ICATIBANT ACETATE
     Dosage: 30MG/3ML, AS REQ^D
     Route: 058
     Dates: start: 20200222
  11. ICATIBANT [Suspect]
     Active Substance: ICATIBANT ACETATE
     Dosage: 30MG/3ML, AS REQ^D
     Route: 058
     Dates: start: 20200729, end: 20200729
  12. ICATIBANT [Suspect]
     Active Substance: ICATIBANT ACETATE
     Dosage: 30MG/3ML, AS REQ^D
     Route: 058
     Dates: start: 20200207, end: 20200207
  13. ICATIBANT [Suspect]
     Active Substance: ICATIBANT ACETATE
     Dosage: 30MG/3ML, AS REQ^D
     Route: 058
     Dates: start: 20200515, end: 20200515
  14. ICATIBANT [Suspect]
     Active Substance: ICATIBANT ACETATE
     Dosage: ICATIBANT PREFILLED SYRINGE OF 30 MG/3 ML
     Route: 058
     Dates: start: 20180202
  15. ICATIBANT [Suspect]
     Active Substance: ICATIBANT ACETATE
     Dosage: 30MG/3ML, AS REQ^D
     Route: 058
     Dates: start: 20200729, end: 20200729
  16. ICATIBANT [Suspect]
     Active Substance: ICATIBANT ACETATE
     Dosage: 30MG/3ML, AS REQ^D
     Route: 058
     Dates: start: 20200817, end: 20200817
  17. ICATIBANT [Suspect]
     Active Substance: ICATIBANT ACETATE
     Dosage: 30 MG/3 ML, ONE PRE-FILLED SYRINGE
     Route: 058
     Dates: start: 20201001, end: 20201001
  18. ICATIBANT [Suspect]
     Active Substance: ICATIBANT ACETATE
     Dosage: 30 MG/3 ML, ONE PRE-FILLED SYRINGE
     Route: 058
     Dates: start: 20201001, end: 20201001
  19. ICATIBANT [Suspect]
     Active Substance: ICATIBANT ACETATE
     Dosage: 30 MG/3 ML, ONE PRE-FILLED SYRINGE
     Route: 058
     Dates: start: 20201006, end: 20201007
  20. ICATIBANT [Suspect]
     Active Substance: ICATIBANT ACETATE
     Dosage: 30MG/3ML, AS REQ^D
     Route: 058
     Dates: start: 20200817, end: 20200817

REACTIONS (3)
  - Hereditary angioedema [Recovered/Resolved]
  - Dysphagia [Recovered/Resolved]
  - Condition aggravated [Unknown]

NARRATIVE: CASE EVENT DATE: 20200208
